FAERS Safety Report 17913946 (Version 1)
Quarter: 2020Q2

REPORT INFORMATION
  Report Type: Spontaneous
  Country: US (occurrence: US)
  Receive Date: 20200619
  Receipt Date: 20200619
  Transmission Date: 20200714
  Serious: Yes (Hospitalization, Other)
  Sender: FDA-Public Use
  Company Number: US-TEIKOKU PHARMA USA-TPU2020-00320

PATIENT
  Sex: Female
  Weight: 86.26 kg

DRUGS (1)
  1. LIDOCAINE PATCH [Suspect]
     Active Substance: LIDOCAINE
     Indication: SPINAL OPERATION
     Route: 061

REACTIONS (5)
  - Rotator cuff syndrome [Not Recovered/Not Resolved]
  - Intervertebral disc degeneration [Unknown]
  - Poisoning [Unknown]
  - Drug hypersensitivity [Unknown]
  - Spinal operation [Unknown]
